FAERS Safety Report 23390288 (Version 2)
Quarter: 2024Q1

REPORT INFORMATION
  Report Type: Report from Study
  Country: CA (occurrence: CA)
  Receive Date: 20240111
  Receipt Date: 20240305
  Transmission Date: 20240410
  Serious: Yes (Other)
  Sender: FDA-Public Use
  Company Number: CA-UCBSA-2023049322

PATIENT
  Sex: Female

DRUGS (3)
  1. BIMEKIZUMAB [Suspect]
     Active Substance: BIMEKIZUMAB
     Indication: Psoriatic arthropathy
     Dosage: 320 MILLIGRAM, EV 4 WEEKS
     Route: 058
     Dates: start: 20231010
  2. BIMEKIZUMAB [Suspect]
     Active Substance: BIMEKIZUMAB
     Indication: Off label use
  3. CORTISONE [Concomitant]
     Active Substance: CORTISONE
     Indication: Arthritis
     Dosage: UNK

REACTIONS (15)
  - Psoriatic arthropathy [Unknown]
  - Injection site erythema [Unknown]
  - Oral candidiasis [Not Recovered/Not Resolved]
  - Ear infection [Recovering/Resolving]
  - Malaise [Not Recovered/Not Resolved]
  - Acne [Recovering/Resolving]
  - Vertigo [Unknown]
  - Excessive cerumen production [Unknown]
  - Ear irrigation [Unknown]
  - Joint injection [Unknown]
  - Off label use [Unknown]
  - Wrong technique in device usage process [Unknown]
  - Intentional dose omission [Unknown]
  - Therapy interrupted [Unknown]
  - Therapeutic product effect incomplete [Unknown]

NARRATIVE: CASE EVENT DATE: 20230101
